FAERS Safety Report 16364054 (Version 1)
Quarter: 2019Q2

REPORT INFORMATION
  Report Type: Spontaneous
  Country: US (occurrence: US)
  Receive Date: 20190528
  Receipt Date: 20190528
  Transmission Date: 20190711
  Serious: Yes (Life-Threatening, Other)
  Sender: FDA-Public Use
  Company Number: US-009507513-1905USA010091

PATIENT
  Age: 62 Year
  Sex: Female

DRUGS (1)
  1. KEYTRUDA [Suspect]
     Active Substance: PEMBROLIZUMAB
     Indication: LUNG CARCINOMA CELL TYPE UNSPECIFIED STAGE IV
     Dosage: 200 MILLIGRAM, Q3W

REACTIONS (5)
  - Therapy partial responder [Not Recovered/Not Resolved]
  - Small intestinal perforation [Recovered/Resolved]
  - Immune-mediated enterocolitis [Unknown]
  - Immune-mediated adverse reaction [Recovered/Resolved]
  - Hypothyroidism [Unknown]
